FAERS Safety Report 13969767 (Version 5)
Quarter: 2019Q1

REPORT INFORMATION
  Report Type: Report from Study
  Country: US (occurrence: US)
  Receive Date: 20170914
  Receipt Date: 20190110
  Transmission Date: 20190417
  Serious: Yes (Hospitalization)
  Sender: FDA-Public Use
  Company Number: US-BRISTOL-MYERS SQUIBB COMPANY-BMS-2017-080956

PATIENT
  Age: 64 Year
  Sex: Male
  Weight: 112.65 kg

DRUGS (20)
  1. LEVOTHYROXINE. [Concomitant]
     Active Substance: LEVOTHYROXINE
     Indication: PRODUCT USED FOR UNKNOWN INDICATION
     Dosage: 1 DF, UNK
     Route: 065
     Dates: start: 200607
  2. PREDNISONE. [Concomitant]
     Active Substance: PREDNISONE
     Indication: PRODUCT USED FOR UNKNOWN INDICATION
     Dosage: 20 UNK, UNK
     Route: 065
     Dates: start: 20170918
  3. CALTRATE D                         /09279801/ [Concomitant]
     Indication: PRODUCT USED FOR UNKNOWN INDICATION
     Dosage: 600 MG, UNK
     Route: 065
     Dates: start: 20170717
  4. MESALAMINE. [Concomitant]
     Active Substance: MESALAMINE
     Indication: PRODUCT USED FOR UNKNOWN INDICATION
     Dosage: 4800 MG, UNK
     Route: 065
     Dates: start: 20170904, end: 20170906
  5. LEVOTHYROXINE. [Concomitant]
     Active Substance: LEVOTHYROXINE
     Indication: PRODUCT USED FOR UNKNOWN INDICATION
     Dosage: 100 ?G, UNK
     Route: 065
     Dates: start: 20170823
  6. NIVOLUMAB [Suspect]
     Active Substance: NIVOLUMAB
     Indication: HORMONE-REFRACTORY PROSTATE CANCER
     Dosage: 1 MG/KG, UNK
     Route: 042
     Dates: start: 20170713, end: 20170928
  7. VITAMIN B COMPLEX [Concomitant]
     Active Substance: CYANOCOBALAMIN\DEXPANTHENOL\NIACINAMIDE\PYRIDOXINE HYDROCHLORIDE\RIBOFLAVIN 5^-PHOSPHATE SODIUM\THIAMINE HYDROCHLORIDE\VITAMIN B COMPLEX
     Indication: PRODUCT USED FOR UNKNOWN INDICATION
     Dosage: 1 DF, UNK
     Route: 065
     Dates: start: 2006
  8. AMBIEN [Concomitant]
     Active Substance: ZOLPIDEM TARTRATE
     Indication: PRODUCT USED FOR UNKNOWN INDICATION
     Dosage: 10 MG, UNK
     Route: 065
     Dates: start: 20120127
  9. BACTRIM DS [Concomitant]
     Active Substance: SULFAMETHOXAZOLE\TRIMETHOPRIM
     Indication: PRODUCT USED FOR UNKNOWN INDICATION
     Dosage: 1 TAB, UNK
     Route: 065
     Dates: start: 20170920
  10. MELATONIN [Concomitant]
     Active Substance: MELATONIN
     Indication: PRODUCT USED FOR UNKNOWN INDICATION
     Dosage: 5 MG, UNK
     Route: 065
     Dates: start: 20170928
  11. ZANTAC [Concomitant]
     Active Substance: RANITIDINE HYDROCHLORIDE
     Indication: PRODUCT USED FOR UNKNOWN INDICATION
     Dosage: 75 MG, UNK
     Route: 065
     Dates: start: 20170908, end: 20170919
  12. MEDROL [Concomitant]
     Active Substance: METHYLPREDNISOLONE
     Indication: PRODUCT USED FOR UNKNOWN INDICATION
     Dosage: UNK
     Route: 065
     Dates: start: 20170905, end: 20170910
  13. PROTONIX                           /00661201/ [Concomitant]
     Active Substance: OMEPRAZOLE
     Indication: PRODUCT USED FOR UNKNOWN INDICATION
     Dosage: 40 MG, UNK
     Route: 065
     Dates: start: 20170919
  14. IPILIMUMAB [Suspect]
     Active Substance: IPILIMUMAB
     Indication: HORMONE-REFRACTORY PROSTATE CANCER
     Dosage: 3 MG/KG, UNK
     Route: 042
     Dates: start: 20170713, end: 20170928
  15. NORCO [Concomitant]
     Active Substance: ACETAMINOPHEN\HYDROCODONE BITARTRATE
     Indication: PRODUCT USED FOR UNKNOWN INDICATION
     Dosage: 1 TAB, UNK
     Route: 065
     Dates: start: 20170729
  16. ALPRAZOLAM. [Concomitant]
     Active Substance: ALPRAZOLAM
     Indication: PRODUCT USED FOR UNKNOWN INDICATION
     Dosage: 0.5 MG, UNK
     Route: 065
     Dates: start: 2006
  17. PREDNISONE. [Concomitant]
     Active Substance: PREDNISONE
     Indication: PRODUCT USED FOR UNKNOWN INDICATION
     Dosage: 5 MG, UNK
     Route: 065
     Dates: start: 20110407
  18. METOPROLOL. [Concomitant]
     Active Substance: METOPROLOL
     Indication: PRODUCT USED FOR UNKNOWN INDICATION
     Dosage: 25 MG, UNK
     Route: 065
     Dates: start: 20170803
  19. HYDROCORTISONE. [Concomitant]
     Active Substance: HYDROCORTISONE
     Indication: PRODUCT USED FOR UNKNOWN INDICATION
     Dosage: UNK
     Route: 065
     Dates: start: 20170905, end: 20170911
  20. INFLIXIMAB [Concomitant]
     Active Substance: INFLIXIMAB
     Indication: PRODUCT USED FOR UNKNOWN INDICATION
     Dosage: 524 MG, UNK
     Route: 065
     Dates: start: 20170928, end: 20170928

REACTIONS (2)
  - Dehydration [Recovered/Resolved]
  - Colitis [Recovered/Resolved]

NARRATIVE: CASE EVENT DATE: 20170906
